FAERS Safety Report 16241990 (Version 1)
Quarter: 2019Q2

REPORT INFORMATION
  Report Type: Spontaneous
  Country: FR (occurrence: FR)
  Receive Date: 20190426
  Receipt Date: 20190426
  Transmission Date: 20190711
  Serious: Yes (Other)
  Sender: FDA-Public Use
  Company Number: FR-ROCHE-2307373

PATIENT
  Age: 59 Year
  Sex: Female

DRUGS (4)
  1. NEURONTIN [Concomitant]
     Active Substance: GABAPENTIN
     Indication: NEURALGIA
     Route: 065
     Dates: start: 200511, end: 200601
  2. VALIUM [Concomitant]
     Active Substance: DIAZEPAM
  3. RIVOTRIL [Suspect]
     Active Substance: CLONAZEPAM
     Indication: NEURALGIA
     Route: 048
  4. LYRICA [Concomitant]
     Active Substance: PREGABALIN

REACTIONS (7)
  - Pain [Not Recovered/Not Resolved]
  - Neuralgia [Unknown]
  - Product use in unapproved indication [Unknown]
  - Gait disturbance [Unknown]
  - Off label use [Unknown]
  - Tremor [Recovered/Resolved]
  - Withdrawal syndrome [Recovered/Resolved]
